FAERS Safety Report 25718673 (Version 1)
Quarter: 2025Q3

REPORT INFORMATION
  Report Type: Spontaneous
  Country: US (occurrence: US)
  Receive Date: 20250823
  Receipt Date: 20250823
  Transmission Date: 20251021
  Serious: Yes (Death, Other)
  Sender: AMGEN
  Company Number: US-AMGEN-USASP2025162394

PATIENT
  Age: 8 Decade

DRUGS (5)
  1. PREDNISONE [Suspect]
     Active Substance: PREDNISONE
     Indication: Hypersensitivity
     Route: 048
  2. PREDNISONE [Suspect]
     Active Substance: PREDNISONE
     Dosage: 15 MILLIGRAM, QD, TAPERED
     Route: 048
  3. NELVUTAMIG [Concomitant]
     Active Substance: NELVUTAMIG
  4. NIVOLUMAB [Concomitant]
     Active Substance: NIVOLUMAB
  5. METHYLPREDNISOLONE [Concomitant]
     Active Substance: METHYLPREDNISOLONE
     Route: 040

REACTIONS (5)
  - Death [Fatal]
  - Metastases to liver [Unknown]
  - Immune-mediated hepatitis [Unknown]
  - Hypertransaminasaemia [Unknown]
  - Hypersensitivity [Unknown]
